FAERS Safety Report 10515875 (Version 3)
Quarter: 2015Q2

REPORT INFORMATION
  Report Type: Spontaneous
  Country: US (occurrence: US)
  Receive Date: 20141014
  Receipt Date: 20150408
  Transmission Date: 20150821
  Serious: No
  Sender: FDA-Public Use
  Company Number: US-PFIZER INC-2014278966

PATIENT
  Age: 75 Year
  Sex: Male
  Weight: 68 kg

DRUGS (9)
  1. VITAMIN B12 [Concomitant]
     Active Substance: CYANOCOBALAMIN
     Dosage: 1000 UG, DAILY
     Route: 048
     Dates: start: 19630930
  2. COLESTIPOL HCL [Suspect]
     Active Substance: COLESTIPOL HYDROCHLORIDE
     Indication: DIARRHOEA
     Dosage: 4 G, 2X/DAY
     Dates: start: 20131119
  3. VITAMIN D3 [Concomitant]
     Active Substance: CHOLECALCIFEROL
     Dosage: 5000 IU, DAILY
     Route: 048
     Dates: start: 19970701
  4. BIOTIN [Concomitant]
     Active Substance: BIOTIN
     Indication: ROSACEA
  5. VITAMIN E [Concomitant]
     Active Substance: .ALPHA.-TOCOPHEROL
     Dosage: 400 IU, DAILY
     Route: 048
     Dates: start: 19630930
  6. BIOTIN [Concomitant]
     Active Substance: BIOTIN
     Indication: RASH
     Dosage: 1000 UG, AS NEEDED
     Dates: start: 20120713
  7. PEPTO DIARRHEA CONTROL [Concomitant]
     Indication: GASTROINTESTINAL DISORDER
     Dosage: UNK (CHILDHOOD AT TIMES ONLY)
  8. COLESTIPOL HCL [Suspect]
     Active Substance: COLESTIPOL HYDROCHLORIDE
     Indication: DIARRHOEA
     Dosage: 4 G, 1X/DAY
     Dates: start: 201407, end: 20140823
  9. COLESTIPOL HCL [Suspect]
     Active Substance: COLESTIPOL HYDROCHLORIDE
     Indication: DIARRHOEA
     Dosage: 1 G, 2X/DAY
     Route: 048
     Dates: start: 201409

REACTIONS (9)
  - Asthenia [Unknown]
  - Pain in extremity [Recovered/Resolved]
  - Dysphagia [Unknown]
  - Hypoaesthesia [Unknown]
  - Drug ineffective [Not Recovered/Not Resolved]
  - Nerve injury [Not Recovered/Not Resolved]
  - Fall [Unknown]
  - Varicose vein [Not Recovered/Not Resolved]
  - Rash [Recovered/Resolved]

NARRATIVE: CASE EVENT DATE: 20131123
